FAERS Safety Report 21025467 (Version 1)
Quarter: 2022Q2

REPORT INFORMATION
  Report Type: Spontaneous
  Country: US (occurrence: US)
  Receive Date: 20220630
  Receipt Date: 20220630
  Transmission Date: 20220720
  Serious: No
  Sender: FDA-Public Use
  Company Number: US-LEADINGPHARMA-US-2022LEASPO00099

PATIENT
  Age: 35 Year
  Sex: Female

DRUGS (1)
  1. LORAZEPAM [Suspect]
     Active Substance: LORAZEPAM
     Indication: Anxiety
     Route: 065

REACTIONS (5)
  - Nightmare [Unknown]
  - Dry mouth [Unknown]
  - Therapeutic product effect decreased [Unknown]
  - Product substitution issue [Unknown]
  - Anxiety [Unknown]
